FAERS Safety Report 21328196 (Version 1)
Quarter: 2022Q3

REPORT INFORMATION
  Report Type: Spontaneous
  Country: US (occurrence: None)
  Receive Date: 20220912
  Receipt Date: 20220912
  Transmission Date: 20221027
  Serious: Yes (Life-Threatening)
  Sender: FDA-Public Use
  Company Number: None

PATIENT
  Age: 71 Year
  Sex: Female
  Weight: 95 kg

DRUGS (2)
  1. ENOXAPARIN [Suspect]
     Active Substance: ENOXAPARIN
     Indication: Pulmonary embolism
     Dosage: FREQUENCY : TWICE A DAY;?
     Route: 058
     Dates: start: 20220902, end: 20220909
  2. WARFARIN [Concomitant]
     Active Substance: WARFARIN
     Dates: start: 20220907, end: 20220908

REACTIONS (3)
  - Abdominal wall haematoma [None]
  - Intra-abdominal haematoma [None]
  - Transfusion [None]

NARRATIVE: CASE EVENT DATE: 20220909
